FAERS Safety Report 16040764 (Version 1)
Quarter: 2019Q1

REPORT INFORMATION
  Report Type: Spontaneous
  Country: US (occurrence: US)
  Receive Date: 20190306
  Receipt Date: 20190306
  Transmission Date: 20190418
  Serious: No
  Sender: FDA-Public Use
  Company Number: US-VIVIMED-2018SP007530

PATIENT

DRUGS (1)
  1. METRONIDAZOLE. [Suspect]
     Active Substance: METRONIDAZOLE
     Indication: TRIMETHYLAMINURIA
     Dosage: 500 MG, BID
     Route: 065

REACTIONS (1)
  - Off label use [Unknown]
